FAERS Safety Report 7770891-5 (Version None)
Quarter: 2011Q3

REPORT INFORMATION
  Report Type: 
  Country: None (occurrence: None)
  Receive Date: 20110922
  Receipt Date: 20110223
  Transmission Date: 20111222
  Serious: Yes (Hospitalization)
  Sender: FDA-Public Use
  Company Number: US-ASTRAZENECA-2007UW02133

PATIENT
  Age: 15123 Day
  Sex: Female
  Weight: 102 kg

DRUGS (30)
  1. ARIPIPRAZOLE [Concomitant]
     Route: 048
     Dates: start: 20021205
  2. DIPHENHYDRAMINE HCL [Concomitant]
     Dosage: 50 MG, TWO CAPSULES, AT BEDTIME
     Route: 048
     Dates: start: 20040902
  3. DIPHENHYDRAMINE HCL [Concomitant]
     Dosage: 50 MG, TWO CAPSULES, AT BEDTIME
     Route: 048
     Dates: start: 20040907
  4. SEROQUEL [Suspect]
     Dosage: 200 MG, TWO TABLETS AT BED TIME
     Route: 048
     Dates: start: 20021205
  5. GEODON [Concomitant]
     Route: 048
     Dates: start: 20040101, end: 20060101
  6. HALDOL [Concomitant]
     Dates: start: 19890101
  7. FEXOFENADINE HCL [Concomitant]
     Route: 048
     Dates: start: 20021025, end: 20031026
  8. ASPIRIN [Concomitant]
     Dates: start: 20040831
  9. THORAZINE [Concomitant]
     Dates: start: 20040101, end: 20050101
  10. LORATADINE [Concomitant]
     Indication: HYPERSENSITIVITY
     Route: 048
     Dates: start: 20030825, end: 20031123
  11. ACETAMINOPHEN [Concomitant]
     Dosage: 325 MG TAB TAKE ONE OR TWO TABLETS BY MOUTH TWICE A DAY AS NEEDED
     Route: 048
     Dates: start: 20040831
  12. SEROQUEL [Suspect]
     Indication: SCHIZOPHRENIA, PARANOID TYPE
     Dosage: 25 TO 50 MG
     Route: 048
     Dates: start: 20021001
  13. RISPERDAL [Concomitant]
     Dosage: 2 MG - 3 MG
     Dates: start: 20030101, end: 20050101
  14. BUPROPION HCL [Concomitant]
     Route: 048
     Dates: start: 20021205
  15. ASPIRIN [Concomitant]
     Route: 048
     Dates: start: 20040902
  16. CYCLOBENZAPRINE HCL [Concomitant]
     Indication: MUSCLE SPASMS
     Route: 048
     Dates: start: 20070413
  17. NAPROXEN [Concomitant]
     Indication: PAIN
     Dosage: 250 MG TAKE ONE TABLET BY MOUTH TWICE A DAY AS NEEDED WITH FOOD FOR PAIN
     Route: 048
     Dates: start: 20021025, end: 20031026
  18. SEROQUEL [Suspect]
     Dosage: 25 MG - 400 MG
     Route: 048
     Dates: start: 20041001, end: 20050401
  19. RISPERDAL [Concomitant]
     Dosage: 3 MG - 4 MG, EVERY DAY
     Route: 048
     Dates: start: 20021205
  20. LITHIUM CARBONATE [Concomitant]
     Route: 048
  21. RANITIDINE HCL [Concomitant]
     Indication: REFLUX GASTRITIS
     Route: 048
     Dates: start: 20021017, end: 20031018
  22. OMEPRAZOLE [Concomitant]
     Route: 048
     Dates: start: 20040831
  23. TRILAFON [Concomitant]
     Route: 048
     Dates: start: 19950101
  24. INSULIN, ASPART, HUMAN INJECT [Concomitant]
     Dosage: 35 UNITS UNDER THE SKIN, AS NEEDED ONLY IF BLOOD SUGAR BEFORE MEALS IS 265 AND ABOVE
     Dates: start: 20070413
  25. SEROQUEL [Suspect]
     Dosage: 25-200 MG
     Route: 048
     Dates: start: 20021017
  26. EZETIMIBE [Concomitant]
     Route: 048
     Dates: start: 20070413
  27. INSULIN, GLARGINE, HUMAN [Concomitant]
     Dosage: 30 UNITS UNDER THE SKIN AT BEDTIME
     Dates: start: 20031125
  28. TOPIRAMATE [Concomitant]
     Route: 048
     Dates: start: 20021025, end: 20031026
  29. TOPIRAMATE [Concomitant]
     Dosage: 100 MG - 200 MG, EVERY DAY
     Route: 048
     Dates: start: 20021205
  30. SIMVASTATIN [Concomitant]
     Dosage: 40 MG, ONE-HALF TABLET BY MOUTH AT BEDTIME
     Route: 048
     Dates: start: 20050216

REACTIONS (18)
  - KETOACIDOSIS [None]
  - WEIGHT INCREASED [None]
  - BLEPHARAL PAPILLOMA [None]
  - COLONOSCOPY [None]
  - HEARING IMPAIRED [None]
  - ENDOMETRIAL DISORDER [None]
  - HYPERPROLACTINAEMIA [None]
  - HEPATIC FUNCTION ABNORMAL [None]
  - TOOTH DISORDER [None]
  - VISION BLURRED [None]
  - OBESITY [None]
  - HYPERGLYCAEMIA [None]
  - TYPE 2 DIABETES MELLITUS [None]
  - BIOPSY LIVER [None]
  - SKIN LESION [None]
  - SKIN PAPILLOMA [None]
  - DYSFUNCTIONAL UTERINE BLEEDING [None]
  - DIABETES MELLITUS INADEQUATE CONTROL [None]
